FAERS Safety Report 7219313-3 (Version None)
Quarter: 2011Q1

REPORT INFORMATION
  Report Type: 
  Country: None (occurrence: None)
  Receive Date: 20110111
  Receipt Date: 20110103
  Transmission Date: 20110831
  Serious: No
  Sender: FDA-Public Use
  Company Number: US-PFIZER INC-2011001069

PATIENT
  Sex: Female
  Weight: 56.236 kg

DRUGS (2)
  1. EFFEXOR XR [Suspect]
     Indication: DEPRESSION
     Dosage: 37.5 MG, DAILY
     Route: 048
     Dates: start: 20100101, end: 20101201
  2. EFFEXOR XR [Suspect]
     Indication: GENERALISED ANXIETY DISORDER

REACTIONS (9)
  - FEAR [None]
  - BALANCE DISORDER [None]
  - TREMOR [None]
  - FATIGUE [None]
  - DRUG INTERACTION [None]
  - CONFUSIONAL STATE [None]
  - ANXIETY [None]
  - DEPRESSION [None]
  - DIZZINESS [None]
